FAERS Safety Report 4627452-6 (Version None)
Quarter: 2005Q1

REPORT INFORMATION
  Report Type: 
  Country: None (occurrence: None)
  Receive Date: 20050331
  Receipt Date: 20050321
  Transmission Date: 20050727
  Serious: Yes (Disabling)
  Sender: FDA-Public Use
  Company Number: 2005048176

PATIENT
  Sex: Female

DRUGS (1)
  1. CLINDAMYCIN HYDROCHLORIDE [Suspect]
     Indication: ILL-DEFINED DISORDER
     Dosage: 900 MG (150 MG, 2 DF THREE TIMES DAILY), ORAL
     Route: 048

REACTIONS (5)
  - ABDOMINAL PAIN UPPER [None]
  - AGEUSIA [None]
  - DIARRHOEA [None]
  - DYSGEUSIA [None]
  - FEELING ABNORMAL [None]
